FAERS Safety Report 7074363-5 (Version None)
Quarter: 2010Q4

REPORT INFORMATION
  Report Type: 
  Country: None (occurrence: None)
  Receive Date: 20101020
  Receipt Date: 20101007
  Transmission Date: 20110411
  Serious: Yes (Hospitalization, Other)
  Sender: FDA-Public Use
  Company Number: 2010AP002080

PATIENT
  Age: 39 Year
  Sex: Female

DRUGS (8)
  1. HALOPERIDOL DECANOATE [Suspect]
     Indication: AGITATION
     Dosage: 7 MG;QD;IM
     Route: 030
  2. LITHIUM CARBONATE CAP [Suspect]
     Indication: BIPOLAR I DISORDER
     Dosage: 600 MG;QD ; 450 MG;QD
  3. CLOZAPINE [Suspect]
     Indication: BIPOLAR I DISORDER
     Dosage: 200 MG 1X ; 275 MG;QD ; 37.5 MG;QD ; 400 MG;QD
  4. VALPROIC ACID SYRUP [Suspect]
     Indication: BIPOLAR I DISORDER
     Dosage: 700 MG;QD
  5. PIPAMPERONE [Suspect]
     Indication: BIPOLAR I DISORDER
     Dosage: 80 MG;QD
  6. DIAZEPAM [Suspect]
     Indication: AGITATION
  7. HALOPERIDOL [Suspect]
     Indication: AGITATION
     Dosage: 10 MG;PO
     Route: 048
  8. LEVOTHYROXINE [Concomitant]

REACTIONS (1)
  - NEUROLEPTIC MALIGNANT SYNDROME [None]
